FAERS Safety Report 16231013 (Version 1)
Quarter: 2019Q2

REPORT INFORMATION
  Report Type: Spontaneous
  Country: US (occurrence: US)
  Receive Date: 20190423
  Receipt Date: 20190423
  Transmission Date: 20190711
  Serious: Yes (Other)
  Sender: FDA-Public Use
  Company Number: US-ABBVIE-19K-163-2750993-00

PATIENT
  Sex: Male

DRUGS (3)
  1. VENETOCLAX. [Suspect]
     Active Substance: VENETOCLAX
     Indication: HORMONE LEVEL ABNORMAL
  2. VENETOCLAX. [Suspect]
     Active Substance: VENETOCLAX
     Indication: CSF TEST ABNORMAL
  3. VENETOCLAX. [Suspect]
     Active Substance: VENETOCLAX
     Indication: ACUTE LYMPHOCYTIC LEUKAEMIA
     Route: 048

REACTIONS (4)
  - Thrombosis [Unknown]
  - Intentional product use issue [Unknown]
  - Asthenia [Unknown]
  - Cystitis [Unknown]
